FAERS Safety Report 8378645-6 (Version None)
Quarter: 2012Q2

REPORT INFORMATION
  Report Type: 
  Country: None (occurrence: None)
  Receive Date: 20120522
  Receipt Date: 20120210
  Transmission Date: 20120825
  Serious: No
  Sender: FDA-Public Use
  Company Number: US-ASTRAZENECA-2012SE09777

PATIENT
  Age: 52 Year
  Sex: Male
  Weight: 97.5 kg

DRUGS (7)
  1. PRILOSEC OTC [Suspect]
     Indication: HIATUS HERNIA
     Route: 048
  2. LEVOTHYROXINE SODIUM [Concomitant]
     Indication: THYROID DISORDER
  3. PRILOSEC [Suspect]
     Dosage: GENIRIC
     Route: 048
  4. LOSARTAN POTASSIUM AND HYDROCHLOROTHIAZIDE [Concomitant]
     Indication: BLOOD PRESSURE ABNORMAL
  5. VITAMIN A [Concomitant]
  6. PRILOSEC [Suspect]
     Indication: HIATUS HERNIA
     Route: 048
  7. SIMVASTATIN [Concomitant]
     Indication: BLOOD CHOLESTEROL ABNORMAL

REACTIONS (2)
  - OFF LABEL USE [None]
  - DRUG INEFFECTIVE [None]
